FAERS Safety Report 23484967 (Version 1)
Quarter: 2024Q1

REPORT INFORMATION
  Report Type: Report from Study
  Country: CO (occurrence: CO)
  Receive Date: 20240206
  Receipt Date: 20240206
  Transmission Date: 20240410
  Serious: Yes (Hospitalization)
  Sender: FDA-Public Use
  Company Number: CO-ABBVIE-5325744

PATIENT
  Age: 64 Year
  Sex: Female
  Weight: 84 kg

DRUGS (7)
  1. SKYRIZI [Suspect]
     Active Substance: RISANKIZUMAB-RZAA
     Indication: Psoriasis
     Dosage: FORM STRENGTH 75 MILLIGRAM
     Route: 058
     Dates: start: 20230607
  2. SKYRIZI [Suspect]
     Active Substance: RISANKIZUMAB-RZAA
     Dosage: FORM STRENGTH: 150MG
     Route: 058
     Dates: start: 202310
  3. LEVOTHYROXINE [Concomitant]
     Active Substance: LEVOTHYROXINE\LEVOTHYROXINE SODIUM
     Indication: Hypothyroidism
     Dosage: 1 TABLET?FORM STRENGTH: 100MG
     Route: 048
     Dates: start: 2010
  4. LOSARTAN [Concomitant]
     Active Substance: LOSARTAN
     Indication: Hypertension
     Dosage: FORM STRENGTH: 50MG
     Route: 048
     Dates: start: 1985
  5. BILASTINE [Concomitant]
     Active Substance: BILASTINE
     Indication: Psoriasis
     Dosage: 1 UNKNOWN
     Route: 048
     Dates: start: 20231220
  6. BILASTINE [Concomitant]
     Active Substance: BILASTINE
     Indication: Psoriasis
     Dosage: 1 UNKNOWN?RESUMED
     Route: 048
  7. PREDNISOLONE [Concomitant]
     Active Substance: PREDNISOLONE
     Indication: Rheumatoid arthritis
     Dosage: 5MG TWICE DAILY?START DATE TEXT: BEFORE SKYRIZI

REACTIONS (5)
  - Vomiting [Recovered/Resolved]
  - Abdominal pain [Recovering/Resolving]
  - Muscle spasms [Recovering/Resolving]
  - Nausea [Recovering/Resolving]
  - Diarrhoea [Recovered/Resolved]

NARRATIVE: CASE EVENT DATE: 20230704
